FAERS Safety Report 7610646-5 (Version None)
Quarter: 2011Q3

REPORT INFORMATION
  Report Type: 
  Country: None (occurrence: None)
  Receive Date: 20110707
  Receipt Date: 20110627
  Transmission Date: 20111222
  Serious: Yes (Hospitalization, Other)
  Sender: FDA-Public Use
  Company Number: GER/UKI/09/0001941

PATIENT
  Age: 34 Year
  Sex: Male

DRUGS (10)
  1. COLOMYCIN (COLISTIN) [Suspect]
     Indication: PRODUCT USED FOR UNKNOWN INDICATION
     Dosage: INTRAVENOUS
     Route: 042
  2. CIPROFLOXACIN [Suspect]
     Indication: PRODUCT USED FOR UNKNOWN INDICATION
  3. AZITHROMYCIN [Suspect]
     Indication: PRODUCT USED FOR UNKNOWN INDICATION
  4. OMEPRAZOLE [Concomitant]
  5. MINOCYCYLINE (MINOCYCLINE) [Suspect]
     Indication: PSEUDOMONAS INFECTION
     Dosage: SUBCUTANEOUS
     Route: 058
  6. TOBI [Concomitant]
  7. CLARITHROMYCIN [Suspect]
     Indication: PSEUDOMONAS INFECTION
     Dosage: SUBCUTANEOUS
     Route: 058
  8. INTERFERON GAMMA NOS [Suspect]
     Indication: PSEUDOMONAS INFECTION
     Dosage: SUBCUTANEOUS
     Route: 058
  9. MEROPENEM [Suspect]
     Indication: PRODUCT USED FOR UNKNOWN INDICATION
     Dosage: INTRAVENOUS
     Route: 042
  10. TOBRAMYCIN [Suspect]
     Indication: PSEUDOMONAS INFECTION
     Dosage: INHALATION
     Route: 055

REACTIONS (6)
  - PSEUDOMEMBRANOUS COLITIS [None]
  - CLOSTRIDIUM DIFFICILE COLITIS [None]
  - DEHYDRATION [None]
  - LUNG DISORDER [None]
  - HYPOTENSION [None]
  - CONDITION AGGRAVATED [None]
